FAERS Safety Report 8029661-5 (Version None)
Quarter: 2012Q1

REPORT INFORMATION
  Report Type: 
  Country: None (occurrence: None)
  Receive Date: 20120109
  Receipt Date: 20120109
  Transmission Date: 20120608
  Serious: Yes (Hospitalization, Other)
  Sender: FDA-Public Use
  Company Number: FR-PFIZER INC-2011316701

PATIENT
  Age: 29 Year
  Sex: Female

DRUGS (7)
  1. LAMICTAL [Suspect]
     Dosage: 200 MG, 1X/DAY
     Route: 048
     Dates: start: 20111015, end: 20111108
  2. ZOLMITRIPTAN [Suspect]
     Indication: MIGRAINE
     Dosage: 2.5 MG, AS NEEDED
     Route: 048
     Dates: start: 20111015
  3. ACETAMINOPHEN [Concomitant]
     Indication: PAIN
     Dosage: 1000 MG, AS NEEDED
     Route: 048
  4. RELPAX [Suspect]
     Indication: MIGRAINE
     Dosage: UNK
     Route: 048
     Dates: start: 20110909, end: 20111015
  5. PANTOPRAZOLE [Concomitant]
     Dosage: 20 MG, 1X/DAY
     Route: 048
     Dates: start: 20110802
  6. DIANE [Concomitant]
     Dosage: UNK
     Route: 048
  7. ESTAZOLAM [Suspect]
     Dosage: 2 MG, 1X/DAY
     Route: 048
     Dates: start: 20111014

REACTIONS (4)
  - DISSEMINATED INTRAVASCULAR COAGULATION [None]
  - DRUG RASH WITH EOSINOPHILIA AND SYSTEMIC SYMPTOMS [None]
  - CYTOLYTIC HEPATITIS [None]
  - HISTIOCYTOSIS HAEMATOPHAGIC [None]
